FAERS Safety Report 11229981 (Version 1)
Quarter: 2015Q3

REPORT INFORMATION
  Report Type: Spontaneous
  Country: US (occurrence: US)
  Receive Date: 20150701
  Receipt Date: 20150701
  Transmission Date: 20151125
  Serious: Yes (Other)
  Sender: FDA-Public Use
  Company Number: US-AUROBINDO-AUR-APL-2015-05485

PATIENT
  Age: 16 Year
  Sex: Male

DRUGS (1)
  1. MINOCYCLINE [Suspect]
     Active Substance: MINOCYCLINE\MINOCYCLINE HYDROCHLORIDE
     Indication: ACNE
     Dosage: 50 MG, TWO TIMES A DAY
     Route: 065

REACTIONS (5)
  - Condition aggravated [Recovered/Resolved]
  - Scrotal swelling [Recovered/Resolved]
  - Tenderness [Recovered/Resolved]
  - Testicular pain [Recovered/Resolved]
  - Nausea [Recovered/Resolved]
